FAERS Safety Report 14419781 (Version 1)
Quarter: 2018Q1

REPORT INFORMATION
  Report Type: Spontaneous
  Country: US (occurrence: US)
  Receive Date: 20180121
  Receipt Date: 20180121
  Transmission Date: 20180509
  Serious: No
  Sender: FDA-Public Use
  Company Number: None

PATIENT
  Age: 37 Year
  Sex: Female
  Weight: 72 kg

DRUGS (10)
  1. SEROQUEL XR [Suspect]
     Active Substance: QUETIAPINE FUMARATE
     Indication: DEPRESSION
     Dosage: ?          QUANTITY:1 TABLET(S);?
     Route: 048
     Dates: start: 20161001, end: 20180118
  2. MAGNESIUM [Concomitant]
     Active Substance: MAGNESIUM
  3. GLUCOSAMINE + CHONODROITIN [Concomitant]
  4. VIIBRYD [Concomitant]
     Active Substance: VILAZODONE HYDROCHLORIDE
  5. CALCIUM [Concomitant]
     Active Substance: CALCIUM
  6. BLACK SEED OIL [Concomitant]
  7. SEROQUEL XR [Suspect]
     Active Substance: QUETIAPINE FUMARATE
     Indication: ANGER
     Dosage: ?          QUANTITY:1 TABLET(S);?
     Route: 048
     Dates: start: 20161001, end: 20180118
  8. XANAX [Concomitant]
     Active Substance: ALPRAZOLAM
  9. VITAMIN D [Concomitant]
     Active Substance: CHOLECALCIFEROL
  10. BUSPAR [Concomitant]
     Active Substance: BUSPIRONE HYDROCHLORIDE

REACTIONS (12)
  - Fatigue [None]
  - Weight increased [None]
  - Blood pressure increased [None]
  - Drug ineffective [None]
  - Gastroenteritis viral [None]
  - Withdrawal syndrome [None]
  - Nausea [None]
  - Pain [None]
  - Agitation [None]
  - Suicidal ideation [None]
  - Insomnia [None]
  - Anxiety [None]

NARRATIVE: CASE EVENT DATE: 20171218
